FAERS Safety Report 4338766-1 (Version None)
Quarter: 2004Q2

REPORT INFORMATION
  Report Type: 
  Country: None (occurrence: None)
  Receive Date: 20040409
  Receipt Date: 20040330
  Transmission Date: 20050107
  Serious: Yes (Death)
  Sender: FDA-Public Use
  Company Number: 163-20785-04020350

PATIENT
  Age: 66 Year
  Sex: Male

DRUGS (3)
  1. THALOMID [Suspect]
     Indication: METASTATIC MALIGNANT MELANOMA
     Dosage: SEE IMAGE
     Route: 048
     Dates: start: 20031120, end: 20031126
  2. THALOMID [Suspect]
     Indication: METASTATIC MALIGNANT MELANOMA
     Dosage: SEE IMAGE
     Route: 048
     Dates: start: 20031127, end: 20031203
  3. THALOMID [Suspect]
     Indication: METASTATIC MALIGNANT MELANOMA
     Dosage: SEE IMAGE
     Route: 048
     Dates: start: 20031204

REACTIONS (2)
  - MALIGNANT NEOPLASM PROGRESSION [None]
  - METASTATIC MALIGNANT MELANOMA [None]
